FAERS Safety Report 13667440 (Version 3)
Quarter: 2017Q3

REPORT INFORMATION
  Report Type: Report from Study
  Country: CA (occurrence: CA)
  Receive Date: 20170620
  Receipt Date: 20170725
  Transmission Date: 20171127
  Serious: Yes (Death, Other)
  Sender: FDA-Public Use
  Company Number: CA-ROCHE-1950691

PATIENT
  Age: 62 Year
  Sex: Male

DRUGS (9)
  1. DEXAMETHASONE. [Concomitant]
     Active Substance: DEXAMETHASONE
  2. APO-FENO-SUPER [Concomitant]
     Active Substance: FENOFIBRATE
  3. APO-ATORVASTATIN [Concomitant]
     Active Substance: ATORVASTATIN
  4. VITAMIN B12 [Concomitant]
     Active Substance: CYANOCOBALAMIN
  5. METONIA [Concomitant]
     Active Substance: METOCLOPRAMIDE
  6. METOPROLOL. [Concomitant]
     Active Substance: METOPROLOL
  7. TECENTRIQ [Suspect]
     Active Substance: ATEZOLIZUMAB
     Indication: BLADDER TRANSITIONAL CELL CARCINOMA METASTATIC
     Route: 042
     Dates: start: 20170606, end: 20170623
  8. GRANISETRON [Concomitant]
     Active Substance: GRANISETRON
  9. DIGOXIN. [Concomitant]
     Active Substance: DIGOXIN

REACTIONS (1)
  - Heart rate decreased [Unknown]

NARRATIVE: CASE EVENT DATE: 20170606
